FAERS Safety Report 8494274-8 (Version None)
Quarter: 2012Q3

REPORT INFORMATION
  Report Type: 
  Country: None (occurrence: None)
  Receive Date: 20120709
  Receipt Date: 20120706
  Transmission Date: 20120928
  Serious: Yes (Other)
  Sender: FDA-Public Use
  Company Number: PHHY2012AR044254

PATIENT
  Sex: Female

DRUGS (2)
  1. DIOVAN [Suspect]
     Indication: HYPERTENSION
     Dosage: 320 MG, DAILY
     Dates: start: 20120401, end: 20120524
  2. DIOVAN [Suspect]
     Dosage: 320 MG, DAILY
     Dates: start: 20120526

REACTIONS (5)
  - PAIN [None]
  - DYSSTASIA [None]
  - ABASIA [None]
  - MOVEMENT DISORDER [None]
  - BONE EROSION [None]
